FAERS Safety Report 6438661-8 (Version None)
Quarter: 2009Q4

REPORT INFORMATION
  Report Type: 
  Country: None (occurrence: None)
  Receive Date: 20091110
  Receipt Date: 20091014
  Transmission Date: 20100525
  Serious: Yes (Hospitalization)
  Sender: FDA-Public Use
  Company Number: 2009IP000090

PATIENT
  Age: 87 Year
  Sex: Female

DRUGS (6)
  1. ISTALOL [Suspect]
     Indication: GLAUCOMA
     Dosage: 1 GTTS;QD;OPH
     Route: 047
     Dates: start: 20090727, end: 20090801
  2. LIPITOR [Concomitant]
  3. VERAPAMIL [Concomitant]
  4. BABY ASPIRIN [Concomitant]
  5. PRILOSEC [Concomitant]
  6. COZAAR [Concomitant]

REACTIONS (2)
  - CARDIAC FAILURE CONGESTIVE [None]
  - MALAISE [None]
